FAERS Safety Report 8351512-X (Version None)
Quarter: 2012Q2

REPORT INFORMATION
  Report Type: 
  Country: None (occurrence: None)
  Receive Date: 20120511
  Receipt Date: 20120427
  Transmission Date: 20120825
  Serious: Yes (Hospitalization, Other)
  Sender: FDA-Public Use
  Company Number: US-MYLANLABS-2009AC000477

PATIENT
  Sex: Male
  Weight: 91.9 kg

DRUGS (20)
  1. CARDIZEM [Concomitant]
  2. XOPENEX [Concomitant]
  3. ATIVAN [Concomitant]
  4. CIPROFLOXACIN [Concomitant]
  5. CARVEDILOL [Concomitant]
  6. LIBRIUM [Concomitant]
  7. LIPITOR [Concomitant]
  8. BACTRIM [Concomitant]
  9. COUMADIN [Concomitant]
  10. COREG [Concomitant]
  11. CRESTOR [Concomitant]
  12. AMIODARONE HCL [Concomitant]
  13. PRAVASTATIN [Concomitant]
  14. PLAVIX [Concomitant]
  15. ALTACE [Concomitant]
  16. DIGOXIN [Suspect]
     Indication: HEART RATE
     Route: 048
     Dates: start: 20071126, end: 20080129
  17. ALDACTONE [Concomitant]
  18. COZAAR [Concomitant]
  19. HEPARIN [Concomitant]
  20. ASPIRIN [Concomitant]

REACTIONS (55)
  - AORTIC VALVE SCLEROSIS [None]
  - NEPHROPATHY [None]
  - CARDIAC VALVE DISEASE [None]
  - INSOMNIA [None]
  - ALCOHOL ABUSE [None]
  - TOBACCO ABUSE [None]
  - COUGH [None]
  - SKIN LESION [None]
  - ANXIETY [None]
  - RHONCHI [None]
  - HEART SOUNDS ABNORMAL [None]
  - ELECTROCARDIOGRAM ABNORMAL [None]
  - BLOOD CREATININE INCREASED [None]
  - DILATATION ATRIAL [None]
  - INJURY [None]
  - INTRACARDIAC THROMBUS [None]
  - PULMONARY HYPERTENSION [None]
  - HYPERLIPIDAEMIA [None]
  - HEART RATE IRREGULAR [None]
  - VENTRICULAR HYPOKINESIA [None]
  - CHEST PAIN [None]
  - ATRIAL FIBRILLATION [None]
  - SINUSITIS [None]
  - DERMAL CYST [None]
  - CHEST DISCOMFORT [None]
  - HIGH DENSITY LIPOPROTEIN DECREASED [None]
  - CARDIAC MURMUR [None]
  - PULMONARY OEDEMA [None]
  - HYPERTENSION [None]
  - DRUG INTOLERANCE [None]
  - BREATH SOUNDS ABNORMAL [None]
  - LEFT VENTRICULAR HYPERTROPHY [None]
  - CARDIOMEGALY [None]
  - DYSPNOEA [None]
  - RENAL FAILURE ACUTE [None]
  - RENAL INJURY [None]
  - ACROCHORDON [None]
  - WHEEZING [None]
  - OEDEMA [None]
  - EJECTION FRACTION DECREASED [None]
  - SCAN MYOCARDIAL PERFUSION ABNORMAL [None]
  - SINUS HEADACHE [None]
  - TYPE 2 DIABETES MELLITUS [None]
  - RENAL IMPAIRMENT [None]
  - DILATATION VENTRICULAR [None]
  - RENAL FAILURE [None]
  - TREATMENT NONCOMPLIANCE [None]
  - RALES [None]
  - ECHOCARDIOGRAM ABNORMAL [None]
  - DRUG LEVEL BELOW THERAPEUTIC [None]
  - PALPITATIONS [None]
  - CARDIAC FAILURE CONGESTIVE [None]
  - CARDIOMYOPATHY [None]
  - SNORING [None]
  - HEART RATE INCREASED [None]
